FAERS Safety Report 24217758 (Version 1)
Quarter: 2024Q3

REPORT INFORMATION
  Report Type: Spontaneous
  Country: CN (occurrence: CN)
  Receive Date: 20240816
  Receipt Date: 20240816
  Transmission Date: 20241016
  Serious: Yes (Life-Threatening)
  Sender: PAREXEL
  Company Number: CN-SHANGHAI JUNSHI BIOSCIENCES CO., LTD.-CN2024011031

PATIENT

DRUGS (3)
  1. TORIPALIMAB [Suspect]
     Active Substance: TORIPALIMAB
     Indication: Hepatic cancer
     Dosage: 240 MG
     Route: 041
     Dates: start: 20240718
  2. GEMCITABINE [Suspect]
     Active Substance: GEMCITABINE
     Indication: Hepatic cancer
     Dosage: 1700 MG
     Route: 041
     Dates: start: 20240718, end: 20240718
  3. GEMCITABINE [Suspect]
     Active Substance: GEMCITABINE
     Dosage: 1700 MG
     Route: 041
     Dates: start: 20240725, end: 20240725

REACTIONS (2)
  - Platelet count decreased [Recovering/Resolving]
  - Off label use [Unknown]

NARRATIVE: CASE EVENT DATE: 20240801
